FAERS Safety Report 6541458-1 (Version None)
Quarter: 2010Q1

REPORT INFORMATION
  Report Type: 
  Country: None (occurrence: None)
  Receive Date: 20100118
  Receipt Date: 20100111
  Transmission Date: 20100710
  Serious: Yes (Other)
  Sender: FDA-Public Use
  Company Number: ES-GILEAD-2009-0024888

PATIENT
  Sex: Female

DRUGS (4)
  1. TRUVADA [Suspect]
     Indication: HIV INFECTION
     Dates: start: 20090820, end: 20090930
  2. TRUVADA [Suspect]
     Indication: HEPATITIS B
  3. KALETRA [Concomitant]
     Indication: HIV INFECTION
     Dates: start: 20090820, end: 20090930
  4. PRAVASTATIN [Concomitant]

REACTIONS (3)
  - ASTHENIA [None]
  - FEELING ABNORMAL [None]
  - HYPOPHOSPHATAEMIA [None]
